FAERS Safety Report 5972582-X (Version None)
Quarter: 2008Q4

REPORT INFORMATION
  Report Type: 
  Country: None (occurrence: None)
  Receive Date: 20081201
  Receipt Date: 20081128
  Transmission Date: 20090506
  Serious: Yes (Other)
  Sender: FDA-Public Use
  Company Number: JP-JNJFOC-20081200118

PATIENT

DRUGS (2)
  1. DUROTEP MT [Suspect]
     Dosage: 4 PATCHES OF 25UG/HR
     Route: 062
  2. DUROTEP MT [Suspect]
     Indication: DRUG USE FOR UNKNOWN INDICATION
     Dosage: 2 PATCHES OF 25UG/HR
     Route: 062

REACTIONS (2)
  - INCOHERENT [None]
  - STUPOR [None]
